FAERS Safety Report 9006515 (Version 2)
Quarter: 2013Q4

REPORT INFORMATION
  Report Type: Report from Study
  Country: US (occurrence: US)
  Receive Date: 20130110
  Receipt Date: 20131016
  Transmission Date: 20140711
  Serious: Yes (Other)
  Sender: FDA-Public Use
  Company Number: US-ELI_LILLY_AND_COMPANY-US201112006939

PATIENT
  Age: 54 Year
  Sex: Female
  Weight: 72.56 kg

DRUGS (10)
  1. TERIPARATIDE [Suspect]
     Indication: SENILE OSTEOPOROSIS
     Dosage: 20 UG, QD
     Dates: start: 20111006, end: 20121231
  2. TOPAMAX [Concomitant]
     Indication: PRODUCT USED FOR UNKNOWN INDICATION
  3. SEROQUEL [Concomitant]
     Indication: PRODUCT USED FOR UNKNOWN INDICATION
  4. WELLBUTRIN [Concomitant]
     Indication: PRODUCT USED FOR UNKNOWN INDICATION
  5. OXYCONTIN [Concomitant]
     Indication: PRODUCT USED FOR UNKNOWN INDICATION
  6. TYLENOL                                 /SCH/ [Concomitant]
     Indication: PRODUCT USED FOR UNKNOWN INDICATION
  7. DIAZEPAM [Concomitant]
     Indication: PRODUCT USED FOR UNKNOWN INDICATION
  8. CALCIUM [Concomitant]
     Indication: PRODUCT USED FOR UNKNOWN INDICATION
  9. GLUCOSAMINE [Concomitant]
     Indication: PRODUCT USED FOR UNKNOWN INDICATION
  10. OXYCODONE [Concomitant]
     Indication: PRODUCT USED FOR UNKNOWN INDICATION
     Dosage: UNK

REACTIONS (27)
  - Ankle fracture [Unknown]
  - Fall [Unknown]
  - Hypoaesthesia [Unknown]
  - Bone pain [Unknown]
  - Bone pain [Unknown]
  - Pain in extremity [Unknown]
  - Joint swelling [Unknown]
  - Oedema peripheral [Unknown]
  - Muscular weakness [Unknown]
  - Fatigue [Unknown]
  - Hypokinesia [Unknown]
  - Fatigue [Unknown]
  - Fall [Recovered/Resolved]
  - Gait disturbance [Unknown]
  - Breast mass [Unknown]
  - Breast pain [Unknown]
  - Arthralgia [Unknown]
  - Drug dose omission [Unknown]
  - Pharyngitis streptococcal [Unknown]
  - Injection site bruising [Unknown]
  - Vitamin D decreased [Unknown]
  - Insomnia [Unknown]
  - Malaise [Unknown]
  - Arthralgia [Unknown]
  - Impaired healing [Unknown]
  - Joint injury [Unknown]
  - Nasopharyngitis [Unknown]
